FAERS Safety Report 16113567 (Version 2)
Quarter: 2021Q2

REPORT INFORMATION
  Report Type: Spontaneous
  Country: US (occurrence: US)
  Receive Date: 20190325
  Receipt Date: 20210413
  Transmission Date: 20210716
  Serious: No
  Sender: FDA-Public Use
  Company Number: US-ALLERGAN-1844411US

PATIENT
  Age: 37 Year
  Sex: Female
  Weight: 48.53 kg

DRUGS (5)
  1. LATISSE [Suspect]
     Active Substance: BIMATOPROST
     Indication: GROWTH OF EYELASHES
     Dosage: 2 GTT, BID
     Route: 061
     Dates: start: 2016
  2. MASCARA [Concomitant]
  3. LATISSE [Suspect]
     Active Substance: BIMATOPROST
     Dosage: 2 GTT, BID
     Route: 061
     Dates: start: 201803
  4. PRENATAL VITAMINS [Concomitant]
     Active Substance: VITAMINS
  5. EYELINER [Concomitant]

REACTIONS (3)
  - Inappropriate schedule of product administration [Unknown]
  - Drug ineffective [Unknown]
  - Pregnancy [Unknown]

NARRATIVE: CASE EVENT DATE: 201803
